FAERS Safety Report 9082612 (Version 1)
Quarter: 2013Q1

REPORT INFORMATION
  Report Type: Report from Study
  Country: US (occurrence: US)
  Receive Date: 20130130
  Receipt Date: 20130130
  Transmission Date: 20140127
  Serious: No
  Sender: FDA-Public Use
  Company Number: US-ABBOTT-12P-163-0954925-00

PATIENT
  Age: 47 Year
  Sex: Female

DRUGS (6)
  1. HUMIRA 40 MG/0.8 ML PEN [Suspect]
     Indication: RHEUMATOID ARTHRITIS
     Dates: start: 20120613, end: 20120627
  2. DEXEDRINE [Concomitant]
     Indication: ATTENTION DEFICIT/HYPERACTIVITY DISORDER
  3. PANTOPRAZOLE [Concomitant]
     Indication: GASTROOESOPHAGEAL REFLUX DISEASE
  4. SYNTHROID [Concomitant]
     Indication: HYPOTHYROIDISM
  5. ATIVAN [Concomitant]
     Indication: PANIC ATTACK
  6. VIIBRYD [Concomitant]
     Indication: DEPRESSION

REACTIONS (14)
  - Rash erythematous [Recovering/Resolving]
  - Rash erythematous [Recovering/Resolving]
  - Rash erythematous [Recovering/Resolving]
  - Influenza like illness [Recovering/Resolving]
  - Fatigue [Recovering/Resolving]
  - Pyrexia [Recovering/Resolving]
  - Chromaturia [Recovering/Resolving]
  - Rash [Unknown]
  - Rash [Unknown]
  - Rash [Unknown]
  - Influenza like illness [Unknown]
  - Lethargy [Unknown]
  - Chromaturia [Unknown]
  - Pyrexia [Unknown]
